FAERS Safety Report 13178353 (Version 1)
Quarter: 2017Q1

REPORT INFORMATION
  Report Type: Spontaneous
  Country: US (occurrence: US)
  Receive Date: 20170131
  Receipt Date: 20170131
  Transmission Date: 20170428
  Serious: Yes (Disabling)
  Sender: FDA-Public Use
  Company Number: None

PATIENT
  Age: 42 Year
  Sex: Male
  Weight: 83.25 kg

DRUGS (2)
  1. CIPRO [Suspect]
     Active Substance: CIPROFLOXACIN HYDROCHLORIDE
     Indication: EPIDIDYMITIS
     Dosage: ?          QUANTITY:20 TABLET(S);?
     Route: 048
     Dates: start: 20170125, end: 20170126
  2. CIPRO [Suspect]
     Active Substance: CIPROFLOXACIN HYDROCHLORIDE
     Indication: URINARY TRACT INFECTION
     Dosage: ?          QUANTITY:20 TABLET(S);?
     Route: 048
     Dates: start: 20170125, end: 20170126

REACTIONS (9)
  - Tremor [None]
  - Confusional state [None]
  - Muscle spasms [None]
  - Paraesthesia [None]
  - Heart rate increased [None]
  - Pain in extremity [None]
  - Pain [None]
  - Hypertension [None]
  - Anxiety [None]

NARRATIVE: CASE EVENT DATE: 20170126
